FAERS Safety Report 7884387-3 (Version None)
Quarter: 2011Q4

REPORT INFORMATION
  Report Type: 
  Country: None (occurrence: None)
  Receive Date: 20111102
  Receipt Date: 20111025
  Transmission Date: 20120403
  Serious: Yes (Other)
  Sender: FDA-Public Use
  Company Number: DE-JNJFOC-20110912201

PATIENT
  Age: 64 Year
  Sex: Male

DRUGS (5)
  1. STELARA [Suspect]
     Indication: PRODUCT USED FOR UNKNOWN INDICATION
     Route: 058
     Dates: start: 20110509, end: 20110509
  2. STELARA [Suspect]
     Route: 058
     Dates: start: 20110906, end: 20110906
  3. STELARA [Suspect]
     Route: 058
     Dates: start: 20110606, end: 20110606
  4. ANTIARRHYTHMIC [Concomitant]
     Indication: ARRHYTHMIA
     Route: 065
  5. MARCUMAR [Concomitant]
     Route: 065

REACTIONS (3)
  - APHASIA [None]
  - HEADACHE [None]
  - TRANSIENT ISCHAEMIC ATTACK [None]
